FAERS Safety Report 12581088 (Version 1)
Quarter: 2016Q3

REPORT INFORMATION
  Report Type: Spontaneous
  Country: IT (occurrence: IT)
  Receive Date: 20160721
  Receipt Date: 20160721
  Transmission Date: 20161109
  Serious: Yes (Other)
  Sender: FDA-Public Use
  Company Number: IT-SHIRE-IT201609080

PATIENT
  Age: 75 Year
  Sex: Male

DRUGS (1)
  1. 476 (MESALAZINE/MESALAMINE) [Suspect]
     Active Substance: MESALAMINE
     Indication: COLITIS ULCERATIVE
     Dosage: UNK, UNKNOWN
     Route: 065
     Dates: start: 2005, end: 201101

REACTIONS (3)
  - Kaposi^s sarcoma [Unknown]
  - Clear cell renal cell carcinoma [Unknown]
  - Renal failure [Unknown]

NARRATIVE: CASE EVENT DATE: 201101
